FAERS Safety Report 15675793 (Version 2)
Quarter: 2018Q4

REPORT INFORMATION
  Report Type: Report from Study
  Country: CR (occurrence: CR)
  Receive Date: 20181130
  Receipt Date: 20181203
  Transmission Date: 20190205
  Serious: Yes (Other)
  Sender: FDA-Public Use
  Company Number: CR-SA-2018SA265178

PATIENT
  Age: 76 Year
  Sex: Male

DRUGS (1)
  1. CLOPIDOGREL BISULFATE. [Suspect]
     Active Substance: CLOPIDOGREL BISULFATE
     Indication: ANTICOAGULANT THERAPY
     Dosage: 1 DF, QOD
     Route: 048
     Dates: start: 2000

REACTIONS (2)
  - Off label use [Unknown]
  - Diverticulitis [Unknown]

NARRATIVE: CASE EVENT DATE: 2000
